FAERS Safety Report 4610069-7 (Version None)
Quarter: 2005Q1

REPORT INFORMATION
  Report Type: 
  Country: None (occurrence: None)
  Receive Date: 20050316
  Receipt Date: 20050308
  Transmission Date: 20050727
  Serious: Yes (Other)
  Sender: FDA-Public Use
  Company Number: ES-GLAXOSMITHKLINE-B0374836A

PATIENT
  Age: 59 Year
  Sex: Male

DRUGS (2)
  1. HYCAMTIN [Suspect]
     Indication: DRUG USE FOR UNKNOWN INDICATION
     Dosage: 2.4MG PER DAY
     Route: 042
     Dates: start: 20050201, end: 20050203
  2. NEOPLATIN [Suspect]
     Indication: NEOPLASM MALIGNANT
     Dosage: 20MG SINGLE DOSE
     Route: 065
     Dates: start: 20050203, end: 20050203

REACTIONS (4)
  - DYSPNOEA [None]
  - PARAESTHESIA [None]
  - PRURITUS [None]
  - RASH MACULO-PAPULAR [None]
